FAERS Safety Report 13273045 (Version 2)
Quarter: 2017Q1

REPORT INFORMATION
  Report Type: Spontaneous
  Country: US (occurrence: US)
  Receive Date: 20170227
  Receipt Date: 20170313
  Transmission Date: 20170428
  Serious: Yes (Other)
  Sender: FDA-Public Use
  Company Number: US-PFIZER INC-2017073279

PATIENT
  Sex: Male

DRUGS (1)
  1. MILRINONE [Suspect]
     Active Substance: MILRINONE
     Dosage: UNK (RATE: 7.5 ML OVER 13 HOURS)

REACTIONS (3)
  - Incorrect drug administration rate [Unknown]
  - Device use error [Unknown]
  - Injury [Unknown]
